FAERS Safety Report 22534866 (Version 1)
Quarter: 2023Q2

REPORT INFORMATION
  Report Type: Report from Study
  Country: US (occurrence: US)
  Receive Date: 20230608
  Receipt Date: 20230608
  Transmission Date: 20230722
  Serious: Yes (Other)
  Sender: FDA-Public Use
  Company Number: US-002147023-NVSC2023US126989

PATIENT
  Sex: Female
  Weight: 52.62 kg

DRUGS (4)
  1. METHOTREXATE [Suspect]
     Active Substance: METHOTREXATE
     Indication: Psoriasis
     Dosage: UNK
     Route: 065
  2. CLOBETASOL [Suspect]
     Active Substance: CLOBETASOL
     Indication: Psoriasis
     Dosage: UNK
     Route: 065
  3. AMLODIPINE [Suspect]
     Active Substance: AMLODIPINE BESYLATE
     Indication: Psoriasis
     Dosage: UNK
     Route: 065
  4. FOLIC ACID [Suspect]
     Active Substance: FOLIC ACID
     Indication: Psoriasis
     Dosage: UNK
     Route: 065

REACTIONS (11)
  - Psoriatic arthropathy [Unknown]
  - Arthralgia [Unknown]
  - Fatigue [Unknown]
  - Depression [Unknown]
  - Swelling [Unknown]
  - Blood pressure increased [Unknown]
  - Skin disorder [Unknown]
  - Pain in extremity [Unknown]
  - Musculoskeletal stiffness [Unknown]
  - Drug intolerance [Unknown]
  - Drug ineffective [Unknown]
